FAERS Safety Report 4558706-X (Version None)
Quarter: 2005Q1

REPORT INFORMATION
  Report Type: 
  Country: None (occurrence: None)
  Receive Date: 20050121
  Receipt Date: 20050121
  Transmission Date: 20050727
  Serious: Yes (Other)
  Sender: FDA-Public Use
  Company Number: None

PATIENT

DRUGS (1)
  1. ACCUTANE [Suspect]
     Indication: ACNE
     Dosage: ONE PO BID
     Route: 048

REACTIONS (2)
  - ACNE [None]
  - CONDITION AGGRAVATED [None]
